FAERS Safety Report 6864412-9 (Version None)
Quarter: 2010Q3

REPORT INFORMATION
  Report Type: 
  Country: None (occurrence: None)
  Receive Date: 20100721
  Receipt Date: 20080409
  Transmission Date: 20110219
  Serious: Yes (Other)
  Sender: FDA-Public Use
  Company Number: US-PFIZER INC-2008025699

PATIENT
  Sex: Male
  Weight: 75.8 kg

DRUGS (10)
  1. CHANTIX [Suspect]
     Indication: SMOKING CESSATION THERAPY
     Dates: start: 20080307
  2. PREDNISONE [Suspect]
     Dates: start: 20080307
  3. SPIRIVA [Suspect]
     Dates: start: 20080307
  4. ADVAIR DISKUS 100/50 [Suspect]
     Dates: start: 20080307
  5. BENAZEPRIL HYDROCHLORIDE [Suspect]
     Dates: start: 20080307
  6. MELOXICAM [Suspect]
     Dates: start: 20080307
  7. PREVACID [Suspect]
     Dates: start: 20080307
  8. SINGULAIR [Suspect]
     Dates: start: 20080307
  9. ALBUTEROL [Suspect]
     Dates: start: 20080307
  10. NASONEX [Suspect]
     Dates: start: 20080307

REACTIONS (3)
  - AGGRESSION [None]
  - BLOOD PRESSURE INCREASED [None]
  - TREMOR [None]
